FAERS Safety Report 8250400-7 (Version None)
Quarter: 2012Q2

REPORT INFORMATION
  Report Type: 
  Country: None (occurrence: None)
  Receive Date: 20120402
  Receipt Date: 20120323
  Transmission Date: 20120825
  Serious: Yes (Other)
  Sender: FDA-Public Use
  Company Number: US-JNJFOC-20120203403

PATIENT
  Sex: Male
  Weight: 68.04 kg

DRUGS (2)
  1. INVEGA SUSTENNA [Suspect]
     Indication: SCHIZOPHRENIA, PARANOID TYPE
     Route: 030
     Dates: start: 20110801, end: 20110823
  2. SEROQUEL [Suspect]
     Indication: SCHIZOPHRENIA, PARANOID TYPE
     Route: 048
     Dates: start: 20110823, end: 20111001

REACTIONS (7)
  - HALLUCINATION [None]
  - WALKING AID USER [None]
  - NERVOUS SYSTEM DISORDER [None]
  - ARRHYTHMIA [None]
  - SCREAMING [None]
  - MUSCLE RIGIDITY [None]
  - MENTAL IMPAIRMENT [None]
